FAERS Safety Report 20101766 (Version 4)
Quarter: 2022Q3

REPORT INFORMATION
  Report Type: Spontaneous
  Country: US (occurrence: US)
  Receive Date: 20211123
  Receipt Date: 20220713
  Transmission Date: 20221027
  Serious: No
  Sender: FDA-Public Use
  Company Number: US-ALKERMES INC.-ALK-2021-005962

PATIENT
  Sex: Female
  Weight: 61.224 kg

DRUGS (5)
  1. VIVITROL [Suspect]
     Active Substance: NALTREXONE
     Indication: Alcoholism
     Dosage: 380 MILLIGRAM, QMO
     Route: 030
     Dates: start: 20211124, end: 20211124
  2. VIVITROL [Suspect]
     Active Substance: NALTREXONE
     Dosage: 380 MILLIGRAM, QMO
     Route: 030
     Dates: start: 20211028, end: 20211028
  3. VIVITROL [Suspect]
     Active Substance: NALTREXONE
     Dosage: 380 MILLIGRAM, QMO
     Route: 030
     Dates: start: 20210208, end: 20210208
  4. UNSPECIFIED INGREDIENT [Concomitant]
     Active Substance: UNSPECIFIED INGREDIENT
     Indication: Product used for unknown indication
     Dosage: UNK, QD
     Route: 065
  5. CLONAZEPAM [Concomitant]
     Active Substance: CLONAZEPAM
     Indication: Product used for unknown indication
     Dosage: UNK
     Route: 065

REACTIONS (7)
  - Wrong technique in product usage process [Recovered/Resolved]
  - Alcoholism [Unknown]
  - Nervousness [Recovered/Resolved]
  - Headache [Recovered/Resolved]
  - Injection site reaction [Not Recovered/Not Resolved]
  - Injection site mass [Recovered/Resolved]
  - Injection site pain [Not Recovered/Not Resolved]

NARRATIVE: CASE EVENT DATE: 20210101
